FAERS Safety Report 18446458 (Version 1)
Quarter: 2020Q4

REPORT INFORMATION
  Report Type: Spontaneous
  Country: US (occurrence: US)
  Receive Date: 20201030
  Receipt Date: 20201030
  Transmission Date: 20210114
  Serious: No
  Sender: FDA-Public Use
  Company Number: None

PATIENT
  Age: 52 Year
  Sex: Female

DRUGS (1)
  1. IMATINIB MES 100MG TAB [Suspect]
     Active Substance: IMATINIB MESYLATE
     Route: 048
     Dates: start: 202010, end: 20201029

REACTIONS (7)
  - Pain in extremity [None]
  - Tinnitus [None]
  - Mobility decreased [None]
  - Pain [None]
  - Epistaxis [None]
  - Vision blurred [None]
  - Memory impairment [None]

NARRATIVE: CASE EVENT DATE: 20201020
